FAERS Safety Report 17689206 (Version 1)
Quarter: 2020Q2

REPORT INFORMATION
  Report Type: Spontaneous
  Country: US (occurrence: US)
  Receive Date: 20200420
  Receipt Date: 20200420
  Transmission Date: 20200714
  Serious: Yes (Hospitalization)
  Sender: FDA-Public Use
  Company Number: None

PATIENT
  Age: 79 Year
  Weight: 95.5 kg

DRUGS (1)
  1. APIXABAN (APIXABAN 5MG TAB) [Suspect]
     Active Substance: APIXABAN
     Indication: ATRIAL FIBRILLATION
     Route: 048
     Dates: start: 20150909, end: 20200402

REACTIONS (4)
  - Large intestine polyp [None]
  - Anaemia [None]
  - Gastric ulcer [None]
  - Therapy interrupted [None]

NARRATIVE: CASE EVENT DATE: 20200402
